FAERS Safety Report 8413920-8 (Version None)
Quarter: 2012Q2

REPORT INFORMATION
  Report Type: 
  Country: None (occurrence: None)
  Receive Date: 20120605
  Receipt Date: 20120530
  Transmission Date: 20120825
  Serious: No
  Sender: FDA-Public Use
  Company Number: JP-JNJFOC-20120516079

PATIENT
  Sex: Male
  Weight: 75 kg

DRUGS (3)
  1. DEPAS [Concomitant]
     Indication: PAIN
     Route: 065
  2. FENTANYL-100 [Suspect]
     Indication: PAIN
     Route: 062
     Dates: start: 20111130, end: 20111218
  3. CYMBALTA [Concomitant]
     Indication: PAIN
     Route: 065

REACTIONS (1)
  - SOMNOLENCE [None]
